FAERS Safety Report 12478407 (Version 1)
Quarter: 2016Q2

REPORT INFORMATION
  Report Type: Spontaneous
  Country: IT (occurrence: IT)
  Receive Date: 20160618
  Receipt Date: 20160618
  Transmission Date: 20160815
  Serious: Yes (Hospitalization)
  Sender: FDA-Public Use
  Company Number: IT-JNJFOC-20160608926

PATIENT
  Age: 82 Year
  Sex: Female

DRUGS (9)
  1. FENTANYL. [Suspect]
     Active Substance: FENTANYL
     Indication: PAIN
     Route: 062
     Dates: start: 20150521, end: 201505
  2. FENTANYL. [Suspect]
     Active Substance: FENTANYL
     Indication: PROCEDURAL PAIN
     Route: 065
     Dates: start: 201505, end: 2015
  3. LEVOFLOXACIN. [Concomitant]
     Active Substance: LEVOFLOXACIN
     Indication: SKIN ULCER
     Route: 048
     Dates: start: 201505, end: 201505
  4. FENTANYL. [Suspect]
     Active Substance: FENTANYL
     Indication: PAIN
     Route: 062
     Dates: start: 201505, end: 20150602
  5. VANCOMYCIN [Concomitant]
     Active Substance: VANCOMYCIN
     Indication: SKIN ULCER
     Route: 065
     Dates: start: 201505
  6. VANCOMYCIN [Concomitant]
     Active Substance: VANCOMYCIN
     Indication: SKIN ULCER
     Route: 065
     Dates: start: 201505
  7. RIFAMPICIN [Concomitant]
     Active Substance: RIFAMPIN
     Indication: SKIN ULCER
     Route: 065
     Dates: start: 201505
  8. FENTANYL. [Suspect]
     Active Substance: FENTANYL
     Indication: PROCEDURAL PAIN
     Route: 065
     Dates: start: 2015, end: 2015
  9. LEVOFLOXACIN. [Concomitant]
     Active Substance: LEVOFLOXACIN
     Indication: SKIN ULCER
     Route: 048

REACTIONS (2)
  - Status epilepticus [Recovered/Resolved]
  - Overdose [Unknown]

NARRATIVE: CASE EVENT DATE: 2015
